FAERS Safety Report 5448871-4 (Version None)
Quarter: 2007Q3

REPORT INFORMATION
  Report Type: 
  Country: None (occurrence: None)
  Receive Date: 20070911
  Receipt Date: 20070801
  Transmission Date: 20080115
  Serious: No
  Sender: FDA-Public Use
  Company Number: US-BRISTOL-MYERS SQUIBB COMPANY-13864780

PATIENT
  Age: 36 Year
  Sex: Male
  Weight: 107 kg

DRUGS (3)
  1. EMSAM [Suspect]
     Indication: DEPRESSION
     Route: 062
  2. LAMICTAL [Concomitant]
  3. TOPAMAX [Concomitant]

REACTIONS (5)
  - DRUG ABUSER [None]
  - DRUG DEPENDENCE [None]
  - DRUG SCREEN FALSE POSITIVE [None]
  - HYPERPHAGIA [None]
  - LIBIDO INCREASED [None]
